FAERS Safety Report 23427477 (Version 2)
Quarter: 2024Q3

REPORT INFORMATION
  Report Type: Spontaneous
  Country: US (occurrence: US)
  Receive Date: 20240122
  Receipt Date: 20240721
  Transmission Date: 20241017
  Serious: No
  Sender: BAYER
  Company Number: US-BAYER-2024A010549

PATIENT
  Age: 54 Year
  Sex: Female

DRUGS (2)
  1. MIRENA [Suspect]
     Active Substance: LEVONORGESTREL
     Indication: Intrauterine contraception
     Dosage: 20?G/DAY
     Route: 015
     Dates: start: 20230825, end: 20240111
  2. ESTRADIOL TRANSDERMAL SYSTEM [Concomitant]
     Active Substance: ESTRADIOL

REACTIONS (5)
  - Device expulsion [Recovered/Resolved]
  - Amenorrhoea [Recovered/Resolved]
  - Abdominal pain lower [None]
  - Arthralgia [None]
  - Uterine spasm [None]

NARRATIVE: CASE EVENT DATE: 20230827
